FAERS Safety Report 25612368 (Version 1)
Quarter: 2025Q3

REPORT INFORMATION
  Report Type: Spontaneous
  Country: IN (occurrence: IN)
  Receive Date: 20250728
  Receipt Date: 20250728
  Transmission Date: 20251021
  Serious: Yes (Life-Threatening, Other)
  Sender: PFIZER
  Company Number: IN-PFIZER INC-PV202500089508

PATIENT
  Age: 53 Month
  Sex: Male

DRUGS (3)
  1. MEROPENEM [Suspect]
     Active Substance: MEROPENEM
     Indication: Mediastinal abscess
  2. CEFOTAXIME [Suspect]
     Active Substance: CEFOTAXIME SODIUM
     Indication: Mediastinal abscess
  3. AMIKACIN [Suspect]
     Active Substance: AMIKACIN
     Indication: Mediastinal abscess

REACTIONS (2)
  - Off label use [Unknown]
  - Drug ineffective for unapproved indication [Unknown]
